FAERS Safety Report 25880585 (Version 3)
Quarter: 2025Q4

REPORT INFORMATION
  Report Type: Spontaneous
  Country: JP (occurrence: JP)
  Receive Date: 20251004
  Receipt Date: 20251226
  Transmission Date: 20260117
  Serious: Yes (Other)
  Sender: JOHNSON AND JOHNSON
  Company Number: JP-JNJFOC-20251000417

PATIENT
  Age: 8 Decade
  Sex: Female

DRUGS (3)
  1. RYBREVANT [Suspect]
     Active Substance: AMIVANTAMAB-VMJW
     Indication: EGFR gene mutation
     Route: 041
     Dates: start: 20250910, end: 20250910
  2. CARBOPLATIN [Suspect]
     Active Substance: CARBOPLATIN
     Indication: EGFR gene mutation
     Dosage: DOSE UNKNOWN
     Route: 041
  3. PEMETREXED [Suspect]
     Active Substance: PEMETREXED
     Indication: EGFR gene mutation
     Dosage: DOSE UNKNOWN
     Route: 041

REACTIONS (2)
  - Myelosuppression [Unknown]
  - Hypoalbuminaemia [Not Recovered/Not Resolved]

NARRATIVE: CASE EVENT DATE: 20250101
